FAERS Safety Report 8574667-0 (Version None)
Quarter: 2012Q3

REPORT INFORMATION
  Report Type: 
  Country: None (occurrence: None)
  Receive Date: 20120807
  Receipt Date: 20120802
  Transmission Date: 20120928
  Serious: Yes (Death, Hospitalization)
  Sender: FDA-Public Use
  Company Number: US-BRISTOL-MYERS SQUIBB COMPANY-16521171

PATIENT
  Age: 68 Year
  Sex: Male

DRUGS (39)
  1. CISPLATIN [Suspect]
     Indication: NON-SMALL CELL LUNG CANCER
     Dosage: 4 CYCLE; LAST DAY OF STUDY THERAPY WAS ON 19MAR12 (CYCLE 5, DAY 1)
     Dates: start: 20111219
  2. TENORMIN [Concomitant]
  3. GAVISCON [Concomitant]
     Dosage: 1DF= 1-2 TBSP AC + HS PRN
  4. AVELOX [Concomitant]
     Dosage: 400MG X 10 DAYS
     Dates: start: 20120409
  5. ZOFRAN [Concomitant]
     Dosage: PRN
  6. FLECAINIDE ACETATE [Concomitant]
     Dosage: 100MG QHS;150 MG MORNING AND NOON
     Route: 048
     Dates: start: 20120301
  7. LOPERAMIDE [Concomitant]
     Route: 048
  8. LEVOTHYROXINE SODIUM [Concomitant]
     Dosage: MRNG
     Route: 048
  9. GUAIFENESIN + CODEINE [Concomitant]
     Dosage: DAILY
     Route: 048
  10. BACTRIM [Concomitant]
     Route: 048
     Dates: start: 20120411
  11. AMBIEN [Concomitant]
     Dosage: 1DF= 5-15MG Q HS PRN
  12. UROXATRAL [Concomitant]
     Dosage: 1DF= 1 TAB
  13. TESSALON [Concomitant]
  14. COMPAZINE [Concomitant]
     Dosage: PRN
  15. ENOXAPARIN [Concomitant]
     Route: 058
  16. HYOMAX-SR [Concomitant]
     Dosage: MRNG,HYOSCYAMINE XR
     Route: 048
  17. XANAX [Concomitant]
     Dosage: 1DF= 0.5-1.0 MG QHS
  18. PRAVACHOL [Concomitant]
     Dosage: QHS
  19. CHERATUSSIN AC [Concomitant]
  20. ALFUZOSIN [Concomitant]
     Route: 048
  21. ALPRAZOLAM [Concomitant]
     Dosage: AT BED TIME,1-2 TABS
     Route: 048
  22. EZETIMIBE [Concomitant]
     Route: 048
  23. ONDANSETRON [Concomitant]
     Dosage: TID,APPROX 3 TIMES/WK
     Route: 048
  24. PROCHLORPERAZINE [Concomitant]
     Dosage: Q6H,APPROX 3 TIMES/WEEK
     Route: 048
  25. ZOLPIDEM TARTRATE [Concomitant]
     Dosage: 1 DF : 5-10MG, AT BED TIME
     Route: 048
  26. SACCHAROMYCES BOULARDII [Concomitant]
     Dosage: MRNG
     Route: 048
  27. GEMCITABINE HYDROCHLORIDE [Suspect]
     Indication: NON-SMALL CELL LUNG CANCER
     Dosage: 4 CYCLE; LAST DAY OF STUDY THERAPY WAS ON 19MAR12 (CYCLE 5, DAY 1)
     Dates: start: 20111219
  28. PRILOSEC [Concomitant]
  29. SYNTHROID [Concomitant]
  30. OMEPRAZOLE [Concomitant]
     Route: 048
  31. MDX-1106 [Suspect]
     Indication: NON-SMALL CELL LUNG CANCER
     Dosage: 4 CYCLE; LAST DAY OF STUDY THERAPY WAS ON 19MAR12 (CYCLE 5, DAY 1)
     Dates: start: 20111219
  32. LOVENOX [Concomitant]
     Route: 058
  33. ZETIA [Concomitant]
     Dosage: 1DF= 1 TAB QHS
  34. PRAVASTATIN [Concomitant]
     Dosage: EVENING
     Route: 048
  35. TESTOSTERONE [Concomitant]
     Dosage: GEL 2.5 GRAM MORNING, APPLIES ONE PUMP (1.25G) TO EACH ARM
     Route: 061
  36. ATENOLOL [Concomitant]
     Indication: PALPITATIONS
     Dosage: MRNG,IF NECESSARY TWO TIMES
     Route: 048
  37. MOXIFLOXACIN [Concomitant]
     Dosage: RECEIVED 4 DOSES
     Route: 048
     Dates: start: 20120409
  38. IMODIUM [Concomitant]
     Dosage: 1DF = 2TABS
  39. ZOLPIDEM [Concomitant]
     Dosage: 5-10 MG AT BEDTIME
     Route: 048

REACTIONS (3)
  - PNEUMONIA [None]
  - NEOPLASM MALIGNANT [None]
  - PNEUMONITIS [None]
